FAERS Safety Report 15109663 (Version 1)
Quarter: 2018Q3

REPORT INFORMATION
  Report Type: Spontaneous
  Country: CN (occurrence: CN)
  Receive Date: 20180705
  Receipt Date: 20180705
  Transmission Date: 20181010
  Serious: Yes (Hospitalization)
  Sender: FDA-Public Use
  Company Number: CN-SHENZHEN TECHDOW PHARMACEUTICAL CO. LTD-CN-2018TEC0000028

PATIENT
  Age: 45 Year
  Sex: Female

DRUGS (1)
  1. HEPARIN SODIUM INJECTION USP, PRESERVATIVE FREE [Suspect]
     Active Substance: HEPARIN SODIUM
     Indication: HAEMODIALYSIS
     Dosage: 0.5 MG/KG (AT 5 MG/HR)
     Dates: end: 20130604

REACTIONS (1)
  - Perirenal haematoma [Recovered/Resolved]
